FAERS Safety Report 23200743 (Version 1)
Quarter: 2023Q4

REPORT INFORMATION
  Report Type: Spontaneous
  Country: US (occurrence: US)
  Receive Date: 20231118
  Receipt Date: 20231118
  Transmission Date: 20240109
  Serious: Yes (Other)
  Sender: FDA-Public Use
  Company Number: US-ENDO-CASE-0042781

PATIENT
  Sex: Female

DRUGS (4)
  1. OPANA ER [Suspect]
     Active Substance: OXYMORPHONE HYDROCHLORIDE
  2. OPANA [Suspect]
     Active Substance: OXYMORPHONE HYDROCHLORIDE
  3. BELBUCA [Suspect]
     Active Substance: BUPRENORPHINE HYDROCHLORIDE
  4. MEPERIDINE HYDROCHLORIDE [Suspect]
     Active Substance: MEPERIDINE HYDROCHLORIDE

REACTIONS (2)
  - Overdose [Unknown]
  - Dependence [Unknown]
